FAERS Safety Report 6823296-5 (Version None)
Quarter: 2010Q3

REPORT INFORMATION
  Report Type: 
  Country: None (occurrence: None)
  Receive Date: 20100708
  Receipt Date: 20100625
  Transmission Date: 20110219
  Serious: Yes (Other)
  Sender: FDA-Public Use
  Company Number: FR-GILEAD-2010-0030099

PATIENT
  Sex: Female
  Weight: 66 kg

DRUGS (15)
  1. VIREAD [Suspect]
     Indication: HIV INFECTION
     Dates: start: 20050101, end: 20091001
  2. VIREAD [Suspect]
     Dates: start: 20091119
  3. MICARDIS HCT [Concomitant]
     Indication: HYPERTENSION
  4. SUSTIVA [Concomitant]
     Dates: end: 20091001
  5. ZIAGEN [Concomitant]
     Dates: end: 20091001
  6. ZIAGEN [Concomitant]
     Dates: start: 20091119
  7. TRUVADA [Concomitant]
     Dates: start: 20100501
  8. REYATAZ [Concomitant]
     Dates: start: 20091119
  9. NORVIR [Concomitant]
     Dates: start: 20091119
  10. ISENTRESS [Concomitant]
     Dates: start: 20100501
  11. LOXEN [Concomitant]
     Indication: HYPERTENSION
     Dates: start: 20100120
  12. SPASFON [Concomitant]
     Dates: start: 20100210
  13. CELESTENE [Concomitant]
     Dates: start: 20100406
  14. CLAMOXYL [Concomitant]
     Dates: start: 20100406
  15. AZT [Concomitant]

REACTIONS (7)
  - ALBUMINURIA [None]
  - ANAEMIA [None]
  - BLOOD ALKALINE PHOSPHATASE INCREASED [None]
  - BLOOD UREA DECREASED [None]
  - PREGNANCY [None]
  - PREMATURE LABOUR [None]
  - PROTEINURIA [None]
